FAERS Safety Report 24108096 (Version 3)
Quarter: 2024Q3

REPORT INFORMATION
  Report Type: Report from Study
  Country: US (occurrence: US)
  Receive Date: 20240718
  Receipt Date: 20240830
  Transmission Date: 20241017
  Serious: Yes (Death)
  Sender: ACADIA PHARMACEUTICALS
  Company Number: US-ACADIA PHARMACEUTICALS INC.-ACA-2024-PIM-002956

PATIENT
  Age: 77 Year
  Sex: Male
  Weight: 91 kg

DRUGS (17)
  1. NUPLAZID [Suspect]
     Active Substance: PIMAVANSERIN TARTRATE
     Indication: Parkinson^s disease psychosis
     Dosage: 34 MILLIGRAM, QD
     Route: 048
     Dates: start: 20240619
  2. NUPLAZID [Suspect]
     Active Substance: PIMAVANSERIN TARTRATE
     Indication: Parkinson^s disease
     Dosage: 34 MILLIGRAM, QD
     Route: 048
     Dates: end: 20240803
  3. RYTARY [Concomitant]
     Active Substance: CARBIDOPA\LEVODOPA
     Dosage: 36.25/145 3X DAILY
  4. ATORVASTATIN [Concomitant]
     Active Substance: ATORVASTATIN
  5. MEMANTINE [Concomitant]
     Active Substance: MEMANTINE
     Dosage: 10 MILLIGRAM, BID
  6. CLOPIDOGREL [Concomitant]
     Active Substance: CLOPIDOGREL BISULFATE
  7. FLUDROCORTISONE [Concomitant]
     Active Substance: FLUDROCORTISONE
     Dosage: 0.1MG
     Dates: start: 20240616
  8. VYZULTA [Concomitant]
     Active Substance: LATANOPROSTENE BUNOD
     Dosage: 0.024%
  9. GALANTAMINE [Concomitant]
     Active Substance: GALANTAMINE
  10. MIDODRINE [Concomitant]
     Active Substance: MIDODRINE
  11. MYRBETRIQ [Concomitant]
     Active Substance: MIRABEGRON
  12. HERBALS\TURMERIC [Concomitant]
     Active Substance: HERBALS\TURMERIC
  13. VITAMIN C [Concomitant]
     Active Substance: ASCORBIC ACID
  14. VITAMIN D NOS [Concomitant]
     Active Substance: CHOLECALCIFEROL\ERGOCALCIFEROL
  15. VSL [Concomitant]
  16. CARBIDOPA LEVODOPA [Concomitant]
     Active Substance: CARBIDOPA\LEVODOPA
  17. VALACYCLOVIR [Concomitant]
     Active Substance: VALACYCLOVIR HYDROCHLORIDE

REACTIONS (22)
  - Illness [Fatal]
  - Parkinson^s disease [Unknown]
  - Blood pressure increased [Unknown]
  - Abdominal distension [Unknown]
  - Communication disorder [Unknown]
  - Dysstasia [Unknown]
  - Drooling [Not Recovered/Not Resolved]
  - Personality change [Not Recovered/Not Resolved]
  - Speech disorder [Not Recovered/Not Resolved]
  - Posture abnormal [Not Recovered/Not Resolved]
  - Arthralgia [Not Recovered/Not Resolved]
  - Back pain [Not Recovered/Not Resolved]
  - Hypotension [Not Recovered/Not Resolved]
  - Herpes zoster [Not Recovered/Not Resolved]
  - Contusion [Not Recovered/Not Resolved]
  - Drug ineffective [Recovered/Resolved]
  - Hallucination [Recovered/Resolved]
  - Fall [Not Recovered/Not Resolved]
  - Confusional state [Not Recovered/Not Resolved]
  - Fall [Unknown]
  - Gait disturbance [Not Recovered/Not Resolved]
  - Urticaria [Not Recovered/Not Resolved]

NARRATIVE: CASE EVENT DATE: 20240601
